FAERS Safety Report 25918033 (Version 1)
Quarter: 2025Q4

REPORT INFORMATION
  Report Type: Spontaneous
  Country: US (occurrence: US)
  Receive Date: 20251014
  Receipt Date: 20251014
  Transmission Date: 20260118
  Serious: Yes (Hospitalization, Other)
  Sender: CHIESI
  Company Number: US-CHIESI-2025CHF07184

PATIENT
  Age: 18 Year
  Sex: Male
  Weight: 60.781 kg

DRUGS (8)
  1. FERRIPROX [Suspect]
     Active Substance: DEFERIPRONE
     Indication: Haemochromatosis
     Dosage: 2000 MILLIGRAM, BID
     Route: 048
     Dates: start: 20210504
  2. FERRIPROX [Suspect]
     Active Substance: DEFERIPRONE
     Indication: Red blood cell transfusion
  3. FERRIPROX [Suspect]
     Active Substance: DEFERIPRONE
     Indication: Sickle cell disease
  4. FOLIC ACID [Concomitant]
     Active Substance: FOLIC ACID
     Indication: Product used for unknown indication
     Dosage: UNK
  5. JADENU [Concomitant]
     Active Substance: DEFERASIROX
     Indication: Product used for unknown indication
     Dosage: UNK
  6. MOTRIN [Concomitant]
     Active Substance: IBUPROFEN
     Indication: Product used for unknown indication
     Dosage: UNK
  7. OXYCODONE [Concomitant]
     Active Substance: OXYCODONE
     Indication: Product used for unknown indication
     Dosage: UNK
  8. LORAZEPAM [Concomitant]
     Active Substance: LORAZEPAM
     Indication: Product used for unknown indication
     Dosage: UNK

REACTIONS (6)
  - Sickle cell anaemia with crisis [Recovered/Resolved]
  - Pneumonia [Recovered/Resolved]
  - Seizure [Recovered/Resolved]
  - Moyamoya disease [Not Recovered/Not Resolved]
  - Chromaturia [Not Recovered/Not Resolved]
  - Off label use [Not Recovered/Not Resolved]

NARRATIVE: CASE EVENT DATE: 20210504
